FAERS Safety Report 7622732-4 (Version None)
Quarter: 2011Q3

REPORT INFORMATION
  Report Type: 
  Country: None (occurrence: None)
  Receive Date: 20110712
  Receipt Date: 20110627
  Transmission Date: 20111222
  Serious: Yes (Other)
  Sender: FDA-Public Use
  Company Number: 2011MA003504

PATIENT
  Age: 75 Year
  Sex: Female
  Weight: 63.9572 kg

DRUGS (42)
  1. IMIPRAMINE [Concomitant]
  2. NAPROXEN [Concomitant]
  3. BENZONATATE [Concomitant]
  4. TRAZODONE HCL [Concomitant]
  5. IBUPROFEN [Concomitant]
  6. FISH OIL [Concomitant]
  7. PREMARIN [Concomitant]
  8. CLARITIN-D 24 HOUR [Concomitant]
  9. COVERA-HS [Concomitant]
  10. FLEXERIL [Concomitant]
  11. ALBUTEROL SULFATE AUTOHALER [Concomitant]
  12. FUROSEMIDE [Concomitant]
  13. VITAMIN B6 [Concomitant]
  14. THORAZINE [Concomitant]
  15. DECADRON [Concomitant]
  16. NAPROSYN [Concomitant]
  17. LORTAB [Concomitant]
  18. PREDNISONE [Concomitant]
  19. XYZAL [Concomitant]
  20. PROTONIX [Concomitant]
  21. ESTRADIOL [Concomitant]
  22. FLONASE [Concomitant]
  23. CELEBREX [Concomitant]
  24. ZANAFLEX [Concomitant]
  25. QUININE SULFATE [Concomitant]
  26. ASCORBIC ACID [Concomitant]
  27. ZYRTEC [Concomitant]
  28. CLONIDINE [Concomitant]
  29. METOCLOPRAMIDE [Suspect]
     Dosage: 10 MG; QID;
     Dates: start: 20081001, end: 20100101
  30. TOFRANIL [Concomitant]
  31. DYNABAC [Concomitant]
  32. LOTENSIN [Concomitant]
  33. SINGULAIR [Concomitant]
  34. COZAAR [Concomitant]
  35. SOMA [Concomitant]
  36. SYNTHROID [Concomitant]
  37. LIDODERM [Concomitant]
  38. VERAPAMIL EXTENDED-RELEASE [Concomitant]
  39. NASONEX [Concomitant]
  40. CYCLOBENZAPRINE [Concomitant]
  41. HYZAAR [Concomitant]
  42. MIRAPEX [Concomitant]

REACTIONS (37)
  - TARDIVE DYSKINESIA [None]
  - EXTRAPYRAMIDAL DISORDER [None]
  - AKATHISIA [None]
  - COUGH [None]
  - MUSCULOSKELETAL PAIN [None]
  - MYELOPATHY [None]
  - GASTRITIS [None]
  - PERONEAL NERVE PALSY [None]
  - OSTEOARTHRITIS [None]
  - DRUG INEFFECTIVE [None]
  - UPPER-AIRWAY COUGH SYNDROME [None]
  - HAEMOGLOBIN DECREASED [None]
  - INJURY [None]
  - MITRAL VALVE INCOMPETENCE [None]
  - SPONDYLOLISTHESIS [None]
  - ECONOMIC PROBLEM [None]
  - TREMOR [None]
  - MUSCLE SPASMS [None]
  - DYSPHONIA [None]
  - CHEST PAIN [None]
  - BLOOD CHOLESTEROL INCREASED [None]
  - HAEMATOCRIT DECREASED [None]
  - MIDDLE INSOMNIA [None]
  - PAIN IN EXTREMITY [None]
  - MYALGIA [None]
  - RALES [None]
  - OVARIAN CYST [None]
  - JOINT EFFUSION [None]
  - STRESS FRACTURE [None]
  - NECK PAIN [None]
  - BACK PAIN [None]
  - TRICUSPID VALVE INCOMPETENCE [None]
  - LUMBAR SPINAL STENOSIS [None]
  - BLOOD UREA INCREASED [None]
  - EMOTIONAL DISORDER [None]
  - RED BLOOD CELL COUNT DECREASED [None]
  - DEVICE CONNECTION ISSUE [None]
